FAERS Safety Report 20797498 (Version 1)
Quarter: 2022Q2

REPORT INFORMATION
  Report Type: Spontaneous
  Country: US (occurrence: US)
  Receive Date: 20220506
  Receipt Date: 20220506
  Transmission Date: 20220720
  Serious: No
  Sender: FDA-Public Use
  Company Number: US-NOVARTISTESTPH-NVSC2022US103989

PATIENT
  Sex: Male

DRUGS (1)
  1. VOTRIENT [Suspect]
     Active Substance: PAZOPANIB HYDROCHLORIDE
     Indication: Renal cell carcinoma
     Route: 065

REACTIONS (12)
  - Constipation [Unknown]
  - Pain in extremity [Unknown]
  - Hair colour changes [Unknown]
  - Thyroid disorder [Unknown]
  - Skin irritation [Unknown]
  - Weight decreased [Unknown]
  - Joint swelling [Unknown]
  - Asthenia [Unknown]
  - Fatigue [Unknown]
  - Diarrhoea [Unknown]
  - Decreased appetite [Unknown]
  - Stomatitis [Unknown]
